FAERS Safety Report 9537868 (Version 1)
Quarter: 2013Q3

REPORT INFORMATION
  Report Type: Report from Study
  Country: DE (occurrence: DE)
  Receive Date: 20130919
  Receipt Date: 20130919
  Transmission Date: 20140515
  Serious: Yes (Death, Hospitalization)
  Sender: FDA-Public Use
  Company Number: DE-ROCHE-1276623

PATIENT
  Age: 72 Year
  Sex: Female

DRUGS (9)
  1. BEVACIZUMAB [Suspect]
     Indication: RECTAL CANCER
     Dosage: DAY 1 OF CHEMOTHERAPY
     Route: 042
     Dates: start: 20080616, end: 20091101
  2. PANTOPRAZOL [Concomitant]
     Indication: PROPHYLAXIS AGAINST GASTROINTESTINAL ULCER
     Route: 048
  3. ASS [Concomitant]
     Route: 048
  4. FUROSEMIDE [Concomitant]
     Route: 048
  5. METAMIZOL [Concomitant]
     Indication: PAIN
     Dosage: IF NEEDED?30 TO 40 GTT
     Route: 048
  6. LOPERAMIDE [Concomitant]
     Indication: DIARRHOEA
     Dosage: IF NEEDED
     Route: 048
  7. MUCOFALK [Concomitant]
     Indication: CONSTIPATION
     Dosage: IF NEEDED
     Route: 048
  8. MORPHINE [Concomitant]
     Indication: PAIN
     Dosage: IF NEEDED
     Route: 048
  9. MCP [Concomitant]
     Indication: NAUSEA
     Dosage: IF NEEDED
     Route: 048

REACTIONS (6)
  - Malignant neoplasm progression [Fatal]
  - Haematuria [Unknown]
  - Hydronephrosis [Unknown]
  - Hypovolaemic shock [Unknown]
  - Haemorrhagic anaemia [Unknown]
  - Cystitis [Unknown]
